FAERS Safety Report 5875011-X (Version None)
Quarter: 2008Q3

REPORT INFORMATION
  Report Type: 
  Country: None (occurrence: None)
  Receive Date: 20080904
  Receipt Date: 20080825
  Transmission Date: 20090109
  Serious: Yes (Other)
  Sender: FDA-Public Use
  Company Number: 2008AP000308

PATIENT
  Age: 44 Year
  Sex: Female

DRUGS (11)
  1. PAROXETINE HYDROCHLORIDE [Suspect]
     Indication: DEPRESSION
     Dosage: 20 MG; PO; QD;  30 MG; PO; QD; 40 MG; PO; QD
     Route: 048
     Dates: start: 20020325
  2. PAROXETINE HYDROCHLORIDE [Suspect]
     Indication: DEPRESSION
     Dosage: 20 MG; PO; QD;  30 MG; PO; QD; 40 MG; PO; QD
     Route: 048
     Dates: start: 20020901
  3. PAROXETINE HYDROCHLORIDE [Suspect]
     Indication: DEPRESSION
     Dosage: 20 MG; PO; QD;  30 MG; PO; QD; 40 MG; PO; QD
     Route: 048
     Dates: start: 20040511
  4. PAROXETINE HYDROCHLORIDE [Suspect]
     Indication: DEPRESSION
     Dosage: 20 MG; PO; QD;  30 MG; PO; QD; 40 MG; PO; QD
     Route: 048
     Dates: start: 20070104
  5. PAROXETINE HYDROCHLORIDE [Suspect]
     Indication: DEPRESSION
     Dosage: 20 MG; PO; QD;  30 MG; PO; QD; 40 MG; PO; QD
     Route: 048
     Dates: start: 20070212
  6. PAROXETINE HYDROCHLORIDE [Suspect]
     Indication: DEPRESSION
     Dosage: 20 MG; PO; QD;  30 MG; PO; QD; 40 MG; PO; QD
     Route: 048
     Dates: start: 20070301
  7. AMITRIPTYLINE HYDROCHLORIDE [Concomitant]
  8. CITALOPRAM HYDROBROMIDE [Concomitant]
  9. RISPERDAL [Concomitant]
  10. ZOPICLONE (ZOPICLONE) [Concomitant]
  11. CODEINE PHOSPHATE (CODEINE PHOSPHATE) [Concomitant]

REACTIONS (16)
  - AFFECTIVE DISORDER [None]
  - ANGER [None]
  - DEPRESSED MOOD [None]
  - DEPRESSION [None]
  - DISTURBANCE IN ATTENTION [None]
  - DRUG WITHDRAWAL SYNDROME [None]
  - HYPOAESTHESIA [None]
  - INTENTIONAL SELF-INJURY [None]
  - LETHARGY [None]
  - MEMORY IMPAIRMENT [None]
  - MICTURITION DISORDER [None]
  - POOR QUALITY SLEEP [None]
  - PSYCHOMOTOR HYPERACTIVITY [None]
  - SLEEP DISORDER [None]
  - SUICIDAL IDEATION [None]
  - TEARFULNESS [None]
